FAERS Safety Report 13499054 (Version 1)
Quarter: 2017Q2

REPORT INFORMATION
  Report Type: Spontaneous
  Country: US (occurrence: US)
  Receive Date: 20170428
  Receipt Date: 20170428
  Transmission Date: 20170830
  Serious: No
  Sender: FDA-Public Use
  Company Number: None

PATIENT
  Age: 57 Year
  Sex: Female

DRUGS (1)
  1. HUMIRA [Suspect]
     Active Substance: ADALIMUMAB
     Indication: CROHN^S DISEASE
     Route: 058
     Dates: start: 20160620, end: 20170415

REACTIONS (6)
  - Liver abscess [None]
  - Clostridium difficile infection [None]
  - Escherichia infection [None]
  - Nonspecific reaction [None]
  - Therapy cessation [None]
  - Immune system disorder [None]

NARRATIVE: CASE EVENT DATE: 20170415
